FAERS Safety Report 6792845 (Version 6)
Quarter: 2016Q3

REPORT INFORMATION
  Report Type: Report from Study
  Country: US (occurrence: US)
  Receive Date: 20081021
  Receipt Date: 20160831
  Transmission Date: 20161109
  Serious: Yes (Hospitalization)
  Sender: FDA-Public Use
  Company Number: US-PFIZER INC-2008084694

PATIENT
  Age: 60 Year
  Sex: Female
  Weight: 90.25 kg

DRUGS (9)
  1. PERCOCET [Concomitant]
     Active Substance: ACETAMINOPHEN\OXYCODONE HYDROCHLORIDE
     Dosage: 7.5/325 MG
     Route: 048
     Dates: start: 20080212
  2. CELECOXIB. [Suspect]
     Active Substance: CELECOXIB
     Indication: OSTEOARTHRITIS
     Dosage: UNK MG, UNK
     Route: 048
     Dates: start: 20070228, end: 20080929
  3. PREDNISONE. [Concomitant]
     Active Substance: PREDNISONE
     Route: 048
     Dates: start: 20080819
  4. MAXZIDE [Concomitant]
     Active Substance: HYDROCHLOROTHIAZIDE\TRIAMTERENE
     Dosage: 25 37.5
     Route: 048
     Dates: start: 20070227
  5. GLIPIZIDE. [Suspect]
     Active Substance: GLIPIZIDE
     Indication: TYPE 2 DIABETES MELLITUS
     Route: 048
     Dates: start: 20070126, end: 20081007
  6. ACETYLSALICYLIC ACID [Concomitant]
     Active Substance: ASPIRIN
     Route: 048
     Dates: start: 20011210
  7. HUMALOG [Concomitant]
     Active Substance: INSULIN LISPRO
     Dosage: 8-22 U
     Route: 058
     Dates: start: 20080918
  8. CADUET [Concomitant]
     Active Substance: AMLODIPINE BESYLATE\ATORVASTATIN CALCIUM
     Dosage: 10/10
     Route: 048
     Dates: start: 20061026
  9. LANTUS [Concomitant]
     Active Substance: INSULIN GLARGINE
     Dosage: 20 U
     Route: 058
     Dates: start: 20080918

REACTIONS (1)
  - Erythema nodosum [Recovering/Resolving]

NARRATIVE: CASE EVENT DATE: 20080929
